FAERS Safety Report 6060752-4 (Version None)
Quarter: 2009Q1

REPORT INFORMATION
  Report Type: 
  Country: None (occurrence: None)
  Receive Date: 20090130
  Receipt Date: 20090130
  Transmission Date: 20090719
  Serious: No
  Sender: FDA-Public Use
  Company Number: None

PATIENT
  Sex: Female

DRUGS (5)
  1. ATROVENT HFA [Suspect]
     Indication: ASTHMA
     Dosage: 2 PUFFS INTO LUNGS 4 TIMES A DAY MOUTH
     Route: 048
     Dates: start: 20081101
  2. ATROVENT HFA [Suspect]
     Indication: CHRONIC OBSTRUCTIVE PULMONARY DISEASE
     Dosage: 2 PUFFS INTO LUNGS 4 TIMES A DAY MOUTH
     Route: 048
     Dates: start: 20081101
  3. PROAIR HFA [Suspect]
     Indication: ASTHMA
     Dosage: 2 PUFFS INTO LUNGS 4 TIMES A DAY MOUTH
     Route: 048
     Dates: start: 20081101
  4. PROAIR HFA [Suspect]
     Indication: CHRONIC OBSTRUCTIVE PULMONARY DISEASE
     Dosage: 2 PUFFS INTO LUNGS 4 TIMES A DAY MOUTH
     Route: 048
     Dates: start: 20081101
  5. COMBIVENT [Concomitant]

REACTIONS (2)
  - DRUG EFFECT DECREASED [None]
  - PRODUCT QUALITY ISSUE [None]
